FAERS Safety Report 11370218 (Version 5)
Quarter: 2021Q2

REPORT INFORMATION
  Report Type: Report from Study
  Country: CA (occurrence: CA)
  Receive Date: 20150812
  Receipt Date: 20210624
  Transmission Date: 20210716
  Serious: Yes (Hospitalization, Other)
  Sender: FDA-Public Use
  Company Number: PHHY2010CA57422

PATIENT
  Age: 51 Year
  Sex: Female

DRUGS (8)
  1. SANDOSTATIN LAR DEPOT [Suspect]
     Active Substance: OCTREOTIDE ACETATE
     Dosage: 30 MG QMO
     Route: 030
     Dates: start: 20090114
  2. RAMIPRIL. [Concomitant]
     Active Substance: RAMIPRIL
     Dosage: 20 MG, QD
     Route: 065
  3. RAMIPRIL. [Concomitant]
     Active Substance: RAMIPRIL
     Indication: PRODUCT USED FOR UNKNOWN INDICATION
     Dosage: UNK
     Route: 065
  4. SANDOSTATIN LAR DEPOT [Suspect]
     Active Substance: OCTREOTIDE ACETATE
     Indication: CARCINOID TUMOUR
     Dosage: 30 MG QMO
     Route: 030
     Dates: start: 2001, end: 2004
  5. SANDOSTATIN LAR DEPOT [Suspect]
     Active Substance: OCTREOTIDE ACETATE
  6. ALTACE [Concomitant]
     Active Substance: RAMIPRIL
     Indication: PRODUCT USED FOR UNKNOWN INDICATION
     Dosage: UNK
     Route: 065
  7. RAMIPRIL. [Concomitant]
     Active Substance: RAMIPRIL
     Dosage: 15 MG, QD
     Route: 065
  8. RAMIPRIL. [Concomitant]
     Active Substance: RAMIPRIL
     Dosage: 50 MG, QD
     Route: 065

REACTIONS (28)
  - Blood pressure systolic increased [Unknown]
  - Underdose [Unknown]
  - Renal cyst [Unknown]
  - Fatigue [Unknown]
  - Cough [Unknown]
  - Dyspnoea [Unknown]
  - Diarrhoea [Unknown]
  - Needle issue [Unknown]
  - Lethargy [Unknown]
  - Chest discomfort [Unknown]
  - Influenza like illness [Recovered/Resolved]
  - Abdominal discomfort [Unknown]
  - Blood pressure increased [Unknown]
  - Blood pressure diastolic decreased [Unknown]
  - Discomfort [Unknown]
  - Upper respiratory tract infection [Recovering/Resolving]
  - Osteopenia [Unknown]
  - Malaise [Recovering/Resolving]
  - Pyrexia [Recovered/Resolved]
  - Pyrexia [Recovering/Resolving]
  - Spigelian hernia [Unknown]
  - Vomiting [Unknown]
  - Pneumonia [Unknown]
  - Injection site granuloma [Unknown]
  - Oropharyngeal pain [Recovering/Resolving]
  - Spleen disorder [Unknown]
  - Abdominal pain [Unknown]
  - Hernia [Unknown]

NARRATIVE: CASE EVENT DATE: 20141002
